FAERS Safety Report 9874407 (Version 1)
Quarter: 2014Q1

REPORT INFORMATION
  Report Type: Spontaneous
  Country: FR (occurrence: FR)
  Receive Date: 20140206
  Receipt Date: 20140206
  Transmission Date: 20141002
  Serious: Yes (Hospitalization, Other)
  Sender: FDA-Public Use
  Company Number: FR-ROCHE-1345025

PATIENT
  Age: 61 Year
  Sex: Female

DRUGS (3)
  1. AVASTIN [Suspect]
     Indication: BREAST CANCER
     Route: 042
  2. TAXOL [Concomitant]
  3. XELODA [Concomitant]
     Route: 065
     Dates: start: 201303, end: 201309

REACTIONS (2)
  - Vascular encephalopathy [Unknown]
  - Hypertension [Unknown]
